FAERS Safety Report 13906755 (Version 2)
Quarter: 2017Q3

REPORT INFORMATION
  Report Type: Spontaneous
  Country: US (occurrence: US)
  Receive Date: 20170825
  Receipt Date: 20170914
  Transmission Date: 20171127
  Serious: Yes (Disabling, Other)
  Sender: FDA-Public Use
  Company Number: US-SAOL THERAPEUTICS-0700784526

PATIENT
  Age: 51 Year
  Sex: Male

DRUGS (4)
  1. BACLOFEN. [Suspect]
     Active Substance: BACLOFEN
     Indication: POST LAMINECTOMY SYNDROME
  2. BACLOFEN. [Suspect]
     Active Substance: BACLOFEN
     Indication: PAIN
     Dosage: 4.6 MG, \DAY
     Route: 037
  3. BUPIVACAINE. [Suspect]
     Active Substance: BUPIVACAINE
     Dosage: 4.6 MG, \DAY
  4. HYDROMORPHONE [Suspect]
     Active Substance: HYDROMORPHONE
     Dosage: 2.8 MG, \DAY
     Route: 037

REACTIONS (6)
  - Off label use [Not Recovered/Not Resolved]
  - Somnolence [Unknown]
  - Therapeutic response decreased [Unknown]
  - Device infusion issue [Unknown]
  - Performance status decreased [Unknown]
  - Pain [Unknown]

NARRATIVE: CASE EVENT DATE: 20170809
